FAERS Safety Report 8190489-7 (Version None)
Quarter: 2012Q1

REPORT INFORMATION
  Report Type: 
  Country: None (occurrence: None)
  Receive Date: 20120307
  Receipt Date: 20120228
  Transmission Date: 20120608
  Serious: Yes (Other)
  Sender: FDA-Public Use
  Company Number: PHHY2012TR011723

PATIENT
  Age: 17 Year
  Sex: Male

DRUGS (7)
  1. RISPERIDONE [Concomitant]
     Dosage: 2 MG, PER DAY
  2. HALOPERIDOL [Concomitant]
  3. FLUOXETINE [Suspect]
     Dosage: 40 MG, QD
  4. FLUOXETINE [Suspect]
     Indication: OBSESSIVE-COMPULSIVE DISORDER
     Dosage: 20 MG, QD
  5. RISPERIDONE [Concomitant]
     Dosage: 2.5 MG, PER DAY
  6. ATOMOXETINE HCL [Interacting]
     Indication: ATTENTION DEFICIT/HYPERACTIVITY DISORDER
     Dosage: 25 MG, QD
  7. RISPERIDONE [Concomitant]
     Dosage: 1.5 MG, PER DAY

REACTIONS (3)
  - DRUG INTERACTION [None]
  - DYSKINESIA [None]
  - TIC [None]
